FAERS Safety Report 9206041 (Version 1)
Quarter: 2013Q2

REPORT INFORMATION
  Report Type: Spontaneous
  Country: US (occurrence: None)
  Receive Date: 20130403
  Receipt Date: 20130403
  Transmission Date: 20140414
  Serious: Yes (Life-Threatening)
  Sender: FDA-Public Use
  Company Number: None

PATIENT
  Age: 82 Year
  Sex: Female
  Weight: 80.2 kg

DRUGS (1)
  1. WARFARIN [Suspect]
     Route: 048

REACTIONS (2)
  - Respiratory disorder [None]
  - International normalised ratio increased [None]
